FAERS Safety Report 4583730-0 (Version None)
Quarter: 2005Q1

REPORT INFORMATION
  Report Type: 
  Country: None (occurrence: None)
  Receive Date: 20050211
  Receipt Date: 20050202
  Transmission Date: 20050727
  Serious: Yes (Death)
  Sender: FDA-Public Use
  Company Number: 8006976

PATIENT
  Age: 51 Year
  Sex: Female
  Weight: 70.45 kg

DRUGS (6)
  1. KEPPRA [Suspect]
     Indication: CONVULSION
     Dosage: 1000 MG 2/D PO
     Route: 048
     Dates: start: 20030601, end: 20030807
  2. KEPPRA [Suspect]
     Indication: CONVULSION
     Dosage: 1750 MG PO
     Route: 048
     Dates: start: 20030808
  3. LAMICTAL [Concomitant]
  4. CLOBAZAM [Concomitant]
  5. ARISSA [Concomitant]
  6. BACTRIM [Concomitant]

REACTIONS (9)
  - ASTHENIA [None]
  - DECREASED APPETITE [None]
  - DRUG LEVEL ABOVE THERAPEUTIC [None]
  - HEADACHE [None]
  - METASTASES TO CENTRAL NERVOUS SYSTEM [None]
  - METASTASES TO SPINE [None]
  - PARAESTHESIA [None]
  - SOMNOLENCE [None]
  - TREMOR [None]
